FAERS Safety Report 5622557-5 (Version None)
Quarter: 2008Q1

REPORT INFORMATION
  Report Type: 
  Country: None (occurrence: None)
  Receive Date: 20080114
  Receipt Date: 20071024
  Transmission Date: 20080703
  Serious: Yes (Death, Hospitalization)
  Sender: FDA-Public Use
  Company Number: A03200706144

PATIENT
  Age: 75 Year
  Sex: Male

DRUGS (3)
  1. PLAVIX [Suspect]
     Dosage: ORAL
     Route: 048
     Dates: start: 20030401
  2. ASPIRIN [Suspect]
     Dates: start: 20030401
  3. BLOOD PRESSURE MEDICATIONS [Concomitant]

REACTIONS (2)
  - HAEMATEMESIS [None]
  - INTESTINAL HAEMORRHAGE [None]
